FAERS Safety Report 11874164 (Version 1)
Quarter: 2015Q4

REPORT INFORMATION
  Report Type: Spontaneous
  Country: US (occurrence: US)
  Receive Date: 20151229
  Receipt Date: 20151229
  Transmission Date: 20160305
  Serious: Yes (Hospitalization)
  Sender: FDA-Public Use
  Company Number: US-BEH-2015057076

PATIENT
  Sex: Female
  Weight: 96 kg

DRUGS (23)
  1. ACETAMINOPHEN. [Concomitant]
     Active Substance: ACETAMINOPHEN
  2. NYSTATIN. [Concomitant]
     Active Substance: NYSTATIN
  3. VALIUM [Concomitant]
     Active Substance: DIAZEPAM
  4. FLEXERIL [Concomitant]
     Active Substance: CYCLOBENZAPRINE HYDROCHLORIDE
  5. DIPHENHYDRAMINE. [Concomitant]
     Active Substance: DIPHENHYDRAMINE
  6. CELEBREX [Concomitant]
     Active Substance: CELECOXIB
  7. LYRICA [Concomitant]
     Active Substance: PREGABALIN
  8. SINGULAIR [Concomitant]
     Active Substance: MONTELUKAST SODIUM
  9. CALCIUM + VITAMIN D [Concomitant]
     Active Substance: CALCIUM\VITAMIN D
  10. EPIPEN [Concomitant]
     Active Substance: EPINEPHRINE
  11. CYMBALTA [Concomitant]
     Active Substance: DULOXETINE HYDROCHLORIDE
  12. OXYCODONE- ACETAMINOPHEN [Concomitant]
  13. FLAGYL [Concomitant]
     Active Substance: METRONIDAZOLE\METRONIDAZOLE HYDROCHLORIDE
  14. HIZENTRA [Suspect]
     Active Substance: HUMAN IMMUNOGLOBULIN G
     Indication: HYPOGAMMAGLOBULINAEMIA
     Dosage: 1 GM 5 ML VIAL
     Route: 058
     Dates: start: 20130206
  15. CIPRO [Concomitant]
     Active Substance: CIPROFLOXACIN HYDROCHLORIDE
  16. WELLBUTRIN [Concomitant]
     Active Substance: BUPROPION HYDROCHLORIDE
  17. HIZENTRA [Suspect]
     Active Substance: HUMAN IMMUNOGLOBULIN G
     Indication: HYPOGAMMAGLOBULINAEMIA
     Dosage: 1 GM 5 ML VIAL
     Route: 058
     Dates: start: 20130206
  18. LIDOCAINE/PRILOCAINE [Concomitant]
  19. ARMOUR THYROID [Concomitant]
     Active Substance: THYROID, PORCINE\THYROID, UNSPECIFIED
  20. VOLTAREN [Concomitant]
     Active Substance: DICLOFENAC SODIUM
  21. GLUCOSAMINE [Concomitant]
     Active Substance: GLUCOSAMINE
  22. GUAIFENESIN. [Concomitant]
     Active Substance: GUAIFENESIN
  23. NEURONTIN [Concomitant]
     Active Substance: GABAPENTIN

REACTIONS (2)
  - Emotional disorder [Unknown]
  - Sinusitis [Unknown]
